FAERS Safety Report 8550236 (Version 2)
Quarter: 2012Q4

REPORT INFORMATION
  Report Type: Report from Study
  Country: VE (occurrence: VE)
  Receive Date: 20120507
  Receipt Date: 20121210
  Transmission Date: 20130627
  Serious: Yes (Death, Hospitalization)
  Sender: FDA-Public Use
  Company Number: VE-ABBOTT-12P-178-0920330-00

PATIENT
  Sex: Male
  Weight: 56 kg

DRUGS (1)
  1. HUMIRA 40 MG/ 0.8 ML PRE-FILLED SYRINGE [Suspect]
     Indication: ANKYLOSING SPONDYLITIS
     Route: 058
     Dates: start: 20091211

REACTIONS (7)
  - Hepatitis [Fatal]
  - Increased upper airway secretion [Unknown]
  - Influenza [Recovered/Resolved]
  - Pneumonia [Fatal]
  - Viral infection [Fatal]
  - Multi-organ failure [Fatal]
  - Dengue fever [Fatal]
